FAERS Safety Report 4889341-1 (Version None)
Quarter: 2006Q1

REPORT INFORMATION
  Report Type: 
  Country: None (occurrence: None)
  Receive Date: 20060120
  Receipt Date: 20060109
  Transmission Date: 20060701
  Serious: Yes (Hospitalization)
  Sender: FDA-Public Use
  Company Number: 200610137BWH

PATIENT
  Age: 75 Year
  Sex: Male
  Weight: 100.4 kg

DRUGS (1)
  1. SORAFENIB [Suspect]
     Indication: NON-SMALL CELL LUNG CANCER METASTATIC
     Dosage: 400 MG BID ORAL
     Route: 048
     Dates: start: 20051216, end: 20060106

REACTIONS (2)
  - PULMONARY EMBOLISM [None]
  - THROMBOSIS [None]
